FAERS Safety Report 21898715 (Version 1)
Quarter: 2023Q1

REPORT INFORMATION
  Report Type: Spontaneous
  Country: US (occurrence: None)
  Receive Date: 20230122
  Receipt Date: 20230122
  Transmission Date: 20230418
  Serious: Yes (Other)
  Sender: FDA-Public Use
  Company Number: None

PATIENT
  Age: 34 Year
  Sex: Female
  Weight: 70.65 kg

DRUGS (4)
  1. LAMOTRIGINE [Suspect]
     Active Substance: LAMOTRIGINE
     Indication: Bipolar disorder
     Route: 048
  2. WELLBUTRIN [Concomitant]
     Active Substance: BUPROPION HYDROCHLORIDE
  3. EFFEXOR [Concomitant]
     Active Substance: VENLAFAXINE HYDROCHLORIDE
  4. LAMICTAL [Concomitant]
     Active Substance: LAMOTRIGINE

REACTIONS (13)
  - Depression [None]
  - Anxiety [None]
  - Suicidal ideation [None]
  - Arrhythmia [None]
  - Pyrexia [None]
  - Myalgia [None]
  - Arthralgia [None]
  - Hyperaesthesia [None]
  - Dyskinesia [None]
  - Muscle twitching [None]
  - Restless legs syndrome [None]
  - Eye pain [None]
  - Cognitive disorder [None]
